FAERS Safety Report 6239133-6 (Version None)
Quarter: 2009Q2

REPORT INFORMATION
  Report Type: 
  Country: None (occurrence: None)
  Receive Date: 20090618
  Receipt Date: 20090618
  Transmission Date: 20091009
  Serious: Yes (Disabling)
  Sender: FDA-Public Use
  Company Number: None

PATIENT
  Age: 47 Year
  Sex: Female
  Weight: 68.0396 kg

DRUGS (2)
  1. ZICAM NO DRIP LIQUID NASEL GEL #B50915 EXP 08/08 [Suspect]
     Indication: NASOPHARYNGITIS
     Dosage: 1-23-07 GEL W/TABLETS ONCE
     Dates: start: 20070123
  2. ZICAM RAPID MELTS TABLETS #5138004 EXP 11/07 [Suspect]
     Dosage: 2-1-07 GEL AGAIN LOST SMELL AND TASTE
     Dates: start: 20070201

REACTIONS (5)
  - AGEUSIA [None]
  - ANOSMIA [None]
  - HEADACHE [None]
  - NASAL DISCOMFORT [None]
  - RHINALGIA [None]
